FAERS Safety Report 11434664 (Version 1)
Quarter: 2015Q3

REPORT INFORMATION
  Report Type: Spontaneous
  Country: JP (occurrence: JP)
  Receive Date: 20150831
  Receipt Date: 20150831
  Transmission Date: 20151125
  Serious: Yes (Life-Threatening, Hospitalization)
  Sender: FDA-Public Use
  Company Number: PHJP2015JP010189

PATIENT
  Age: 24 Day
  Sex: Male
  Weight: .99 kg

DRUGS (15)
  1. SANDOSTATIN [Suspect]
     Active Substance: OCTREOTIDE ACETATE
     Indication: CHYLOTHORAX
     Dosage: 0.1 UG/KG, QD
     Route: 058
  2. SANDOSTATIN [Suspect]
     Active Substance: OCTREOTIDE ACETATE
     Dosage: 30 UG, UNK
     Route: 058
     Dates: start: 20120326, end: 20120421
  3. VENILON [Concomitant]
     Active Substance: HUMAN IMMUNOGLOBULIN G
     Indication: PRODUCT USED FOR UNKNOWN INDICATION
     Route: 065
  4. SULPERAZON [Concomitant]
     Active Substance: CEFOPERAZONE SODIUM\SULBACTAM SODIUM
     Indication: PRODUCT USED FOR UNKNOWN INDICATION
     Route: 065
  5. SANDOSTATIN [Suspect]
     Active Substance: OCTREOTIDE ACETATE
     Dosage: 0.4 UG/KG, UNK
     Route: 058
  6. SEISHOKU [Concomitant]
     Active Substance: SODIUM CHLORIDE
     Indication: PRODUCT USED FOR UNKNOWN INDICATION
     Dosage: 10 ML, TOTAL 4 TIMES
     Route: 065
  7. BACTROBAN [Concomitant]
     Active Substance: MUPIROCIN\MUPIROCIN CALCIUM
     Indication: STAPHYLOCOCCAL INFECTION
     Route: 045
     Dates: start: 20120328, end: 20120331
  8. ANTHROBIN [Concomitant]
     Indication: ANTITHROMBIN III DEFICIENCY
     Dosage: 50 IU, QD
     Route: 042
     Dates: start: 20120326, end: 20120326
  9. THYRADIN-S [Concomitant]
     Active Substance: LEVOTHYROXINE
     Indication: HYPOTHYROIDISM
     Dosage: 5 UG, QD
     Route: 048
     Dates: start: 20120329, end: 20120504
  10. NOBELBAR [Concomitant]
     Active Substance: PHENOBARBITAL SODIUM
     Indication: PRODUCT USED FOR UNKNOWN INDICATION
     Route: 065
  11. PICIBANIL [Concomitant]
     Active Substance: OK-432
     Indication: CHYLOTHORAX
     Dosage: 0.5 IU, TOTAL 4 TIMES
     Route: 038
     Dates: start: 20120422, end: 20120505
  12. EPOETIN ALFA [Concomitant]
     Active Substance: ERYTHROPOIETIN
     Indication: ANAEMIA NEONATAL
     Dosage: 300 IU, QD
     Route: 058
     Dates: start: 20120330, end: 20120531
  13. KAYTWO [Concomitant]
     Active Substance: MENATETRENONE
     Indication: VITAMIN K DEFICIENCY
     Dosage: 0.5 MG, QD
     Route: 042
     Dates: start: 20120326, end: 20120326
  14. SURFACTEN [Concomitant]
     Indication: NEONATAL RESPIRATORY DISTRESS SYNDROME
     Dosage: 120 MG, QD
     Route: 007
     Dates: start: 20120322, end: 20120416
  15. VANCOMYCIN [Concomitant]
     Active Substance: VANCOMYCIN
     Indication: PRODUCT USED FOR UNKNOWN INDICATION
     Route: 065

REACTIONS (5)
  - Product use issue [Unknown]
  - Hepatic enzyme increased [Recovered/Resolved]
  - Pneumonia [Recovered/Resolved]
  - Liver disorder [Recovering/Resolving]
  - Jaundice cholestatic [Recovering/Resolving]

NARRATIVE: CASE EVENT DATE: 20120405
